FAERS Safety Report 9373326 (Version 3)
Quarter: 2013Q3

REPORT INFORMATION
  Report Type: Spontaneous
  Country: US (occurrence: US)
  Receive Date: 20130627
  Receipt Date: 20130910
  Transmission Date: 20140515
  Serious: No
  Sender: FDA-Public Use
  Company Number: US-PFIZER INC-2013188016

PATIENT
  Age: 19 Year
  Sex: Male
  Weight: 65.76 kg

DRUGS (1)
  1. CLINDAMYCIN PHOSPHATE [Suspect]
     Indication: ACNE
     Dosage: UNK (4-5 TIMES A DAY)
     Dates: start: 20130601, end: 201306

REACTIONS (2)
  - Product container issue [Unknown]
  - Drug administration error [Unknown]
